FAERS Safety Report 13986185 (Version 3)
Quarter: 2017Q3

REPORT INFORMATION
  Report Type: Spontaneous
  Country: TR (occurrence: TR)
  Receive Date: 20170919
  Receipt Date: 20170926
  Transmission Date: 20171128
  Serious: Yes (Hospitalization)
  Sender: FDA-Public Use
  Company Number: TR-AMGEN-TURSP2017140325

PATIENT
  Age: 4 Year
  Sex: Male

DRUGS (5)
  1. PEDIFEN [Concomitant]
     Dosage: UNK
  2. METOJECT [Concomitant]
     Active Substance: METHOTREXATE SODIUM
     Dosage: UNK
  3. FOLBIOL [Concomitant]
     Active Substance: FOLIC ACID
     Dosage: UNK
  4. ANTEPSIN [Concomitant]
     Active Substance: SUCRALFATE
     Dosage: UNK
  5. ENBREL [Suspect]
     Active Substance: ETANERCEPT
     Indication: JUVENILE IDIOPATHIC ARTHRITIS
     Dosage: ONCE A WEEK
     Route: 058
     Dates: start: 20150811

REACTIONS (1)
  - Acute lymphocytic leukaemia [Not Recovered/Not Resolved]

NARRATIVE: CASE EVENT DATE: 20170824
